FAERS Safety Report 23467215 (Version 1)
Quarter: 2024Q1

REPORT INFORMATION
  Report Type: Spontaneous
  Country: FR (occurrence: FR)
  Receive Date: 20240201
  Receipt Date: 20240201
  Transmission Date: 20240410
  Serious: Yes (Other)
  Sender: FDA-Public Use
  Company Number: FR-SANDOZ-SDZ2023FR071597

PATIENT
  Sex: Female
  Weight: 56 kg

DRUGS (1)
  1. ACLASTA [Suspect]
     Active Substance: ZOLEDRONIC ACID
     Indication: Osteoporotic fracture
     Dosage: 5 MG, EVERY YEAR
     Route: 042
     Dates: start: 2019

REACTIONS (5)
  - Behcet^s syndrome [Unknown]
  - Skin exfoliation [Unknown]
  - Rash pruritic [Not Recovered/Not Resolved]
  - Sleep disorder [Unknown]
  - Erythema [Not Recovered/Not Resolved]
